FAERS Safety Report 11186669 (Version 1)
Quarter: 2015Q2

REPORT INFORMATION
  Report Type: Spontaneous
  Country: IT (occurrence: IT)
  Receive Date: 20150613
  Receipt Date: 20150613
  Transmission Date: 20150821
  Serious: Yes (Hospitalization)
  Sender: FDA-Public Use
  Company Number: IT-HOSPIRA-2891763

PATIENT
  Age: 78 Year
  Sex: Male

DRUGS (12)
  1. LEDERFOLIN [Suspect]
     Active Substance: LEUCOVORIN CALCIUM
  2. ZALTRAP                            /06225401/ [Suspect]
     Active Substance: AFLIBERCEPT
  3. LEDERFOLIN [Suspect]
     Active Substance: LEUCOVORIN CALCIUM
     Indication: RECTAL CANCER
     Dosage: DAILY
     Route: 042
     Dates: start: 20150420, end: 20150420
  4. IRINOTECAN HYDROCHLORIDE. [Suspect]
     Active Substance: IRINOTECAN HYDROCHLORIDE
     Indication: RECTAL CANCER
     Route: 042
     Dates: start: 20150420, end: 20150420
  5. FLUOROURACIL. [Suspect]
     Active Substance: FLUOROURACIL
     Indication: RECTAL CANCER
     Route: 042
     Dates: start: 20150420, end: 20150420
  6. FLUOROURACIL. [Suspect]
     Active Substance: FLUOROURACIL
  7. ZALTRAP                            /06225401/ [Suspect]
     Active Substance: AFLIBERCEPT
     Indication: RECTAL CANCER
     Route: 042
     Dates: start: 20150420, end: 20150420
  8. ZALTRAP                            /06225401/ [Suspect]
     Active Substance: AFLIBERCEPT
  9. IRINOTECAN HYDROCHLORIDE. [Suspect]
     Active Substance: IRINOTECAN HYDROCHLORIDE
  10. LEDERFOLIN [Suspect]
     Active Substance: LEUCOVORIN CALCIUM
  11. FLUOROURACIL. [Suspect]
     Active Substance: FLUOROURACIL
  12. IRINOTECAN HYDROCHLORIDE. [Suspect]
     Active Substance: IRINOTECAN HYDROCHLORIDE

REACTIONS (2)
  - Embolism arterial [Not Recovered/Not Resolved]
  - Diarrhoea [Recovered/Resolved]

NARRATIVE: CASE EVENT DATE: 20150429
